FAERS Safety Report 16500668 (Version 1)
Quarter: 2019Q3

REPORT INFORMATION
  Report Type: Spontaneous
  Country: US (occurrence: US)
  Receive Date: 20190628
  Receipt Date: 20190628
  Transmission Date: 20191004
  Serious: Yes (Hospitalization)
  Sender: FDA-Public Use
  Company Number: None

PATIENT
  Age: 43 Year
  Sex: Female

DRUGS (1)
  1. DIHYDROERGOTAMINE [Suspect]
     Active Substance: DIHYDROERGOTAMINE
     Indication: MIGRAINE
     Dosage: ?          OTHER FREQUENCY:2MG/DAY + 4MG/WEEK;?
     Route: 030
     Dates: start: 20190627

REACTIONS (2)
  - Therapy cessation [None]
  - Headache [None]

NARRATIVE: CASE EVENT DATE: 20190621
